FAERS Safety Report 6665404-5 (Version None)
Quarter: 2010Q2

REPORT INFORMATION
  Report Type: 
  Country: None (occurrence: None)
  Receive Date: 20100402
  Receipt Date: 20100324
  Transmission Date: 20101027
  Serious: Yes (Hospitalization)
  Sender: FDA-Public Use
  Company Number: AU-PFIZER INC-2010037976

PATIENT
  Age: 51 Year
  Sex: Male

DRUGS (8)
  1. CEFAZOLIN [Suspect]
     Dosage: 1000 MG, SINGLE
     Route: 042
     Dates: start: 20100301, end: 20100301
  2. MIDAZOLAM HCL [Suspect]
     Dosage: 1.5 MG, SINGLE
     Route: 042
     Dates: start: 20100301, end: 20100301
  3. METHYLPREDNISOLONE ACETATE [Suspect]
     Dosage: 500 MG, SINGLE
     Route: 042
     Dates: start: 20100301, end: 20100301
  4. ATRACURIUM BESILATE [Suspect]
     Dosage: 50 MG, SINGLE
     Route: 042
     Dates: start: 20100301, end: 20100301
  5. FENTANYL [Suspect]
     Dosage: 150 UG, SINGLE
     Route: 042
     Dates: start: 20100301, end: 20100301
  6. MANNITOL [Suspect]
     Dosage: 25 G, SINGLE
     Route: 042
     Dates: start: 20100301, end: 20100301
  7. PROPOFOL [Suspect]
     Dosage: 200 MG, SINGLE
     Route: 042
     Dates: start: 20100301, end: 20100301
  8. SIMULECT [Suspect]
     Dosage: 20 MG, SINGLE
     Route: 042
     Dates: start: 20100301, end: 20100301

REACTIONS (1)
  - HYPOTENSION [None]
